FAERS Safety Report 9345254 (Version 1)
Quarter: 2013Q2

REPORT INFORMATION
  Report Type: Spontaneous
  Country: US (occurrence: US)
  Receive Date: 20130612
  Receipt Date: 20130612
  Transmission Date: 20140414
  Serious: Yes (Other)
  Sender: FDA-Public Use
  Company Number: US-ELI_LILLY_AND_COMPANY-US201105003439

PATIENT
  Age: 60 Year
  Sex: Female

DRUGS (6)
  1. FORTEO [Suspect]
     Indication: SENILE OSTEOPOROSIS
     Dosage: 20 UG, QD
     Route: 065
     Dates: start: 20110506
  2. FORTEO [Suspect]
     Dosage: 20 UG, QD
     Dates: end: 20111119
  3. FORTEO [Suspect]
     Dosage: 20 UG, QD
     Route: 065
     Dates: start: 201112, end: 20120119
  4. FORTEO [Suspect]
     Dosage: 20 UG, QD
     Route: 065
  5. FORTEO [Suspect]
     Dosage: 20 UG, QD
     Route: 065
  6. FORTEO [Suspect]
     Dosage: UNK, QD
     Dates: start: 201108, end: 20130505

REACTIONS (15)
  - Ankle fracture [Unknown]
  - Fall [Unknown]
  - Nervousness [Not Recovered/Not Resolved]
  - Skin lesion [Recovering/Resolving]
  - Rash pruritic [Recovered/Resolved]
  - Blister [Unknown]
  - Nervousness [Unknown]
  - Haemorrhage [Unknown]
  - Increased upper airway secretion [Unknown]
  - Pruritus [Recovering/Resolving]
  - Skin mass [Recovering/Resolving]
  - Stress [Unknown]
  - Rash generalised [Recovered/Resolved]
  - Incorrect dose administered [Unknown]
  - Accidental overdose [Unknown]
